FAERS Safety Report 25036134 (Version 1)
Quarter: 2025Q1

REPORT INFORMATION
  Report Type: Spontaneous
  Country: US (occurrence: US)
  Receive Date: 20250304
  Receipt Date: 20250304
  Transmission Date: 20250408
  Serious: No
  Sender: CHIESI
  Company Number: US-CHIESI-2025CHF00860

PATIENT
  Age: 54 Year
  Sex: Female

DRUGS (1)
  1. ELFABRIO [Suspect]
     Active Substance: PEGUNIGALSIDASE ALFA-IWXJ
     Indication: Fabry^s disease
     Dosage: 70 MILLIGRAM, QOW
     Route: 065
     Dates: start: 20250122

REACTIONS (1)
  - Influenza [Recovered/Resolved]

NARRATIVE: CASE EVENT DATE: 20250122
